FAERS Safety Report 13552399 (Version 1)
Quarter: 2017Q2

REPORT INFORMATION
  Report Type: Other
  Country: JP (occurrence: JP)
  Receive Date: 20170517
  Receipt Date: 20170517
  Transmission Date: 20170830
  Serious: Yes (Other)
  Sender: FDA-Public Use
  Company Number: JP-TAKEDA-2017TJP009743

PATIENT
  Age: 49 Year
  Sex: Male

DRUGS (1)
  1. TAKEPRON OD TABLETS 15 [Suspect]
     Active Substance: LANSOPRAZOLE
     Indication: SUICIDE ATTEMPT
     Dosage: 15 MG, UNK
     Route: 048

REACTIONS (1)
  - Toxicity to various agents [Unknown]
